FAERS Safety Report 13559952 (Version 1)
Quarter: 2017Q2

REPORT INFORMATION
  Report Type: Spontaneous
  Country: US (occurrence: US)
  Receive Date: 20170518
  Receipt Date: 20170518
  Transmission Date: 20170830
  Serious: Yes (Other)
  Sender: FDA-Public Use
  Company Number: US-APOTEX-2017AP012241

PATIENT
  Age: 16 Month

DRUGS (1)
  1. ALKERAN [Suspect]
     Active Substance: MELPHALAN
     Indication: RETINOBLASTOMA
     Dosage: 30 ?G, Q.WK.
     Route: 050

REACTIONS (4)
  - Retinopathy [Unknown]
  - Retinal pigment epitheliopathy [Unknown]
  - Retinal depigmentation [Unknown]
  - Retinogram abnormal [Recovering/Resolving]
